FAERS Safety Report 6372236-4 (Version None)
Quarter: 2009Q3

REPORT INFORMATION
  Report Type: 
  Country: None (occurrence: None)
  Receive Date: 20090924
  Receipt Date: 20090914
  Transmission Date: 20100115
  Serious: Yes (Hospitalization)
  Sender: FDA-Public Use
  Company Number: US-BIOGENIDEC-2005BI005770

PATIENT
  Age: 38 Year
  Sex: Female
  Weight: 65 kg

DRUGS (3)
  1. AVONEX [Suspect]
     Indication: MULTIPLE SCLEROSIS
     Route: 030
     Dates: start: 19980101, end: 20030811
  2. AVONEX [Suspect]
     Route: 030
     Dates: start: 20031006
  3. SYNTHROID [Concomitant]
     Indication: THYROIDECTOMY
     Dates: start: 19980101

REACTIONS (5)
  - BONE DENSITY DECREASED [None]
  - MULTIPLE SCLEROSIS RELAPSE [None]
  - THROMBOSIS [None]
  - THYROID CANCER [None]
  - WEIGHT INCREASED [None]
